APPROVED DRUG PRODUCT: NITROGLYCERIN
Active Ingredient: NITROGLYCERIN
Strength: 0.4%
Dosage Form/Route: OINTMENT;INTRA-ANAL
Application: A216103 | Product #001 | TE Code: AB
Applicant: COSETTE PHARMACEUTICALS INC
Approved: Feb 16, 2024 | RLD: No | RS: No | Type: RX